FAERS Safety Report 10157839 (Version 2)
Quarter: 2014Q2

REPORT INFORMATION
  Report Type: Report from Study
  Country: CA (occurrence: CA)
  Receive Date: 20140507
  Receipt Date: 20140521
  Transmission Date: 20141212
  Serious: Yes (Other)
  Sender: FDA-Public Use
  Company Number: CA-ABBVIE-14P-028-1231250-00

PATIENT
  Age: 41 Year
  Sex: Female
  Weight: 83.99 kg

DRUGS (5)
  1. HUMIRA [Suspect]
     Indication: CROHN^S DISEASE
     Route: 058
     Dates: start: 20140328
  2. CIPRO [Suspect]
     Indication: INFECTION
     Route: 042
     Dates: start: 201404
  3. CIPRO [Suspect]
     Indication: INFECTION
     Route: 048
     Dates: start: 201401
  4. FLAGYL [Concomitant]
     Indication: INFECTION
     Route: 048
     Dates: start: 201401
  5. IMURAN [Concomitant]
     Indication: INFECTION
     Route: 048
     Dates: start: 201401

REACTIONS (7)
  - Drug hypersensitivity [Unknown]
  - Cardiac disorder [Unknown]
  - Burning sensation [Unknown]
  - Vein discolouration [Unknown]
  - Decreased immune responsiveness [Not Recovered/Not Resolved]
  - Colonic abscess [Not Recovered/Not Resolved]
  - Pyrexia [Not Recovered/Not Resolved]
